FAERS Safety Report 13633750 (Version 1)
Quarter: 2017Q2

REPORT INFORMATION
  Report Type: Spontaneous
  Country: US (occurrence: US)
  Receive Date: 20170531
  Receipt Date: 20170531
  Transmission Date: 20170830
  Serious: No
  Sender: FDA-Public Use
  Company Number: US-ASTELLAS-1569552

PATIENT
  Age: 84 Year
  Sex: Male

DRUGS (6)
  1. TARCEVA [Suspect]
     Active Substance: ERLOTINIB HYDROCHLORIDE
     Indication: LUNG NEOPLASM MALIGNANT
     Route: 048
     Dates: start: 20141205
  2. CRESTOR [Concomitant]
     Active Substance: ROSUVASTATIN CALCIUM
  3. IRBESARTAN. [Concomitant]
     Active Substance: IRBESARTAN
  4. LYRICA [Concomitant]
     Active Substance: PREGABALIN
  5. TEMAZEPAM. [Concomitant]
     Active Substance: TEMAZEPAM
  6. RESTORIL (UNITED STATES) [Concomitant]

REACTIONS (2)
  - Pruritus [Unknown]
  - Oral herpes [Unknown]

NARRATIVE: CASE EVENT DATE: 20150425
